FAERS Safety Report 4352346-3 (Version None)
Quarter: 2004Q2

REPORT INFORMATION
  Report Type: 
  Country: None (occurrence: None)
  Receive Date: 20040427
  Receipt Date: 20031212
  Transmission Date: 20050107
  Serious: Yes (Hospitalization, Disabling)
  Sender: FDA-Public Use
  Company Number: WAES 0312USA01406

PATIENT
  Age: 73 Year
  Sex: Female

DRUGS (8)
  1. SINGULAIR [Suspect]
     Indication: ASTHMA
     Dosage: 10 MG/DAILY/PO
     Route: 048
  2. COZAAR [Concomitant]
  3. EVISTA [Concomitant]
  4. HYDRODIURIL [Concomitant]
  5. NORVASC [Concomitant]
  6. PULMICORT [Concomitant]
  7. ZESTRIL [Concomitant]
  8. ASPIRIN [Concomitant]

REACTIONS (1)
  - PANCREATITIS [None]
